FAERS Safety Report 5398873-1 (Version None)
Quarter: 2007Q3

REPORT INFORMATION
  Report Type: 
  Country: None (occurrence: None)
  Receive Date: 20070727
  Receipt Date: 20070717
  Transmission Date: 20080115
  Serious: Yes (Other)
  Sender: FDA-Public Use
  Company Number: PHNU2007DE01539

PATIENT
  Age: 23 Year
  Sex: Male
  Weight: 88.5 kg

DRUGS (2)
  1. LEPONEX [Suspect]
     Indication: SCHIZOPHRENIA, DISORGANISED TYPE
     Dosage: UP TO 400MG/DAY
     Route: 048
     Dates: start: 20060215, end: 20070416
  2. LEPONEX [Suspect]
     Dosage: UP TO 200 MG/DAY
     Route: 048
     Dates: start: 20070423

REACTIONS (12)
  - ALANINE AMINOTRANSFERASE INCREASED [None]
  - COUGH [None]
  - GAMMA-GLUTAMYLTRANSFERASE INCREASED [None]
  - INFLUENZA [None]
  - LEUKOPENIA [None]
  - MALAISE [None]
  - MONOCYTE COUNT INCREASED [None]
  - NEUTROPENIA [None]
  - PLATELET COUNT DECREASED [None]
  - PYREXIA [None]
  - TACHYCARDIA [None]
  - TRANSAMINASES INCREASED [None]
